FAERS Safety Report 5309316-8 (Version None)
Quarter: 2007Q2

REPORT INFORMATION
  Report Type: 
  Country: None (occurrence: None)
  Receive Date: 20070425
  Receipt Date: 20070425
  Transmission Date: 20071010
  Serious: Yes (Life-Threatening, Other)
  Sender: FDA-Public Use
  Company Number: None

PATIENT
  Age: 58 Year
  Sex: Male
  Weight: 106.5953 kg

DRUGS (2)
  1. VICOPROFEN [Suspect]
     Indication: BREAKTHROUGH PAIN
     Dosage: 1 TABLE 4XDAY MOUTH
     Route: 048
     Dates: start: 20070309
  2. VICOPROFEN [Suspect]
     Indication: BREAKTHROUGH PAIN
     Dosage: 1 TABLE 6XDAY MOUTH
     Route: 048
     Dates: start: 20070403

REACTIONS (6)
  - ASTHENIA [None]
  - DRUG EFFECT DECREASED [None]
  - HEPATOMEGALY [None]
  - INTESTINAL OBSTRUCTION [None]
  - NAUSEA [None]
  - PAIN [None]
